FAERS Safety Report 8818513 (Version 2)
Quarter: 2012Q4

REPORT INFORMATION
  Report Type: 
  Country: ES (occurrence: ES)
  Receive Date: 20121001
  Receipt Date: 20121012
  Transmission Date: 20130627
  Serious: Yes (Hospitalization)
  Sender: FDA-Public Use
  Company Number: ES-BRISTOL-MYERS SQUIBB COMPANY-16980922

PATIENT
  Age: 44 Year
  Sex: Male

DRUGS (6)
  1. IRBESARTAN [Suspect]
     Indication: HYPERTENSION
     Route: 048
     Dates: start: 20120116
  2. CARVEDILOL [Interacting]
     Indication: HYPERTENSION
     Route: 048
     Dates: start: 20120115
  3. ENALAPRIL [Interacting]
     Indication: HYPERTENSION
     Route: 048
     Dates: start: 20120116
  4. TACROLIMUS [Interacting]
     Indication: RENAL TRANSPLANT
     Dosage: Strength:5mg 30Extended release hard caps 30X1
     Route: 048
     Dates: start: 20120110, end: 20120121
  5. CARDURAN NEO [Interacting]
     Indication: HYPERTENSION
     Dosage: Strength: 4mg,modified release tabs
     Route: 048
     Dates: start: 20120115
  6. SEPTRIN FORTE [Interacting]
     Indication: PROPHYLAXIS
     Dosage: 1df = 20 tabs
     Route: 048
     Dates: start: 20120116, end: 20120121

REACTIONS (5)
  - Hyperkalaemia [Recovered/Resolved]
  - Hypomagnesaemia [Recovered/Resolved]
  - Asthenia [Recovered/Resolved]
  - Paraesthesia [Recovered/Resolved]
  - Drug interaction [Unknown]
